FAERS Safety Report 18590030 (Version 1)
Quarter: 2020Q4

REPORT INFORMATION
  Report Type: Spontaneous
  Country: US (occurrence: US)
  Receive Date: 20201207
  Receipt Date: 20201207
  Transmission Date: 20210114
  Serious: Yes (Death)
  Sender: FDA-Public Use
  Company Number: None

PATIENT
  Age: 74 Year
  Sex: Male

DRUGS (2)
  1. CINACALCET 30MG [Suspect]
     Active Substance: CINACALCET
     Indication: HYPERPARATHYROIDISM
     Dosage: ?          OTHER DOSE:CINACALCET 30MG;?
     Route: 048
     Dates: start: 20190721, end: 20201203
  2. TACROLIMUS 1MG [Suspect]
     Active Substance: TACROLIMUS
     Indication: RENAL TRANSPLANT
     Dosage: ?          OTHER DOSE:TACROLIMUS 1MG;?
     Route: 048
     Dates: start: 20150515, end: 20201203

REACTIONS (1)
  - Death [None]

NARRATIVE: CASE EVENT DATE: 20201203
